FAERS Safety Report 12741508 (Version 1)
Quarter: 2016Q3

REPORT INFORMATION
  Report Type: Report from Study
  Country: US (occurrence: US)
  Receive Date: 20160914
  Receipt Date: 20160914
  Transmission Date: 20161109
  Serious: Yes (Other)
  Sender: FDA-Public Use
  Company Number: US-ROCHE-1829705

PATIENT
  Age: 62 Year
  Sex: Female
  Weight: 65.5 kg

DRUGS (2)
  1. BEVACIZUMAB [Suspect]
     Active Substance: BEVACIZUMAB
     Indication: MALIGNANT NEOPLASM OF ISLETS OF LANGERHANS
     Route: 065
  2. TEMSIROLIMUS [Suspect]
     Active Substance: TEMSIROLIMUS
     Indication: MALIGNANT NEOPLASM OF ISLETS OF LANGERHANS
     Route: 065

REACTIONS (5)
  - Hyponatraemia [Unknown]
  - Proteinuria [Unknown]
  - Hypertension [Unknown]
  - Haemolysis [Unknown]
  - Upper gastrointestinal haemorrhage [Unknown]
